FAERS Safety Report 22071934 (Version 1)
Quarter: 2023Q1

REPORT INFORMATION
  Report Type: Spontaneous
  Country: US (occurrence: US)
  Receive Date: 20230307
  Receipt Date: 20230307
  Transmission Date: 20230417
  Serious: Yes (Other)
  Sender: FDA-Public Use
  Company Number: US-AMGEN-USASP2023038525

PATIENT
  Age: 71 Year

DRUGS (1)
  1. BLINCYTO [Suspect]
     Active Substance: BLINATUMOMAB
     Indication: B precursor type acute leukaemia
     Dosage: 9 MICROGRAM, QD
     Route: 065

REACTIONS (5)
  - Neurotoxicity [Unknown]
  - Respiratory failure [Unknown]
  - Fatigue [Unknown]
  - Asthenia [Unknown]
  - Paraesthesia [Unknown]
